FAERS Safety Report 5873936-2 (Version None)
Quarter: 2008Q3

REPORT INFORMATION
  Report Type: 
  Country: None (occurrence: None)
  Receive Date: 20080905
  Receipt Date: 20080905
  Transmission Date: 20090109
  Serious: Yes (Hospitalization)
  Sender: FDA-Public Use
  Company Number: None

PATIENT
  Sex: Male
  Weight: 120.2032 kg

DRUGS (1)
  1. LEVAQUIN [Suspect]
     Indication: PULMONARY CONGESTION
     Dosage: 750MG 1XDAY PO
     Route: 048
     Dates: start: 20080121, end: 20080130

REACTIONS (2)
  - INFECTIVE TENOSYNOVITIS [None]
  - TENDON RUPTURE [None]
